FAERS Safety Report 22220681 (Version 4)
Quarter: 2023Q4

REPORT INFORMATION
  Report Type: Spontaneous
  Country: US (occurrence: US)
  Receive Date: 20230417
  Receipt Date: 20231109
  Transmission Date: 20240110
  Serious: Yes (Other)
  Sender: FDA-Public Use
  Company Number: US-BEH-2023157530

PATIENT
  Age: 19 Year
  Sex: Male

DRUGS (24)
  1. IDELVION [Suspect]
     Active Substance: COAGULATION FACTOR IX RECOMBINANT HUMAN
     Indication: Factor IX deficiency
     Dosage: 1000 INTERNATIONAL UNIT, QW
     Route: 042
     Dates: start: 201207
  2. IDELVION [Suspect]
     Active Substance: COAGULATION FACTOR IX RECOMBINANT HUMAN
     Indication: Factor IX deficiency
     Dosage: 1000 INTERNATIONAL UNIT, QW
     Route: 042
     Dates: start: 201207
  3. IDELVION [Suspect]
     Active Substance: COAGULATION FACTOR IX RECOMBINANT HUMAN
     Indication: Prophylaxis
     Dosage: 5000 INTERNATIONAL UNIT, QW
     Route: 042
     Dates: start: 20230315
  4. IDELVION [Suspect]
     Active Substance: COAGULATION FACTOR IX RECOMBINANT HUMAN
     Indication: Prophylaxis
     Dosage: 5000 INTERNATIONAL UNIT, QW
     Route: 042
     Dates: start: 20230315
  5. IDELVION [Suspect]
     Active Substance: COAGULATION FACTOR IX RECOMBINANT HUMAN
     Dosage: 5000 INTERNATIONAL UNIT, QW
     Route: 042
     Dates: start: 201207
  6. IDELVION [Suspect]
     Active Substance: COAGULATION FACTOR IX RECOMBINANT HUMAN
     Dosage: 5000 INTERNATIONAL UNIT, QW
     Route: 042
     Dates: start: 201207
  7. IDELVION [Suspect]
     Active Substance: COAGULATION FACTOR IX RECOMBINANT HUMAN
     Dosage: 5000 INTERNATIONAL UNIT, PRN
     Route: 042
     Dates: start: 201207
  8. IDELVION [Suspect]
     Active Substance: COAGULATION FACTOR IX RECOMBINANT HUMAN
     Dosage: 5000 INTERNATIONAL UNIT, PRN
     Route: 042
     Dates: start: 201207
  9. IDELVION [Suspect]
     Active Substance: COAGULATION FACTOR IX RECOMBINANT HUMAN
     Dosage: 1 DOSAGE FORM (PROPHYLACTIC DOSE)
     Route: 065
     Dates: start: 202310
  10. IDELVION [Suspect]
     Active Substance: COAGULATION FACTOR IX RECOMBINANT HUMAN
     Dosage: 1 DOSAGE FORM (PROPHYLACTIC DOSE)
     Route: 065
     Dates: start: 202310
  11. IDELVION [Suspect]
     Active Substance: COAGULATION FACTOR IX RECOMBINANT HUMAN
     Dosage: 1 DOSAGE FORM, PRN
     Route: 065
     Dates: start: 202310
  12. IDELVION [Suspect]
     Active Substance: COAGULATION FACTOR IX RECOMBINANT HUMAN
     Dosage: 1 DOSAGE FORM, PRN
     Route: 065
     Dates: start: 202310
  13. IDELVION [Suspect]
     Active Substance: COAGULATION FACTOR IX RECOMBINANT HUMAN
     Indication: Factor IX deficiency
     Dosage: 3500 INTERNATIONAL UNIT, QW
     Route: 042
     Dates: start: 201207
  14. IDELVION [Suspect]
     Active Substance: COAGULATION FACTOR IX RECOMBINANT HUMAN
     Indication: Factor IX deficiency
     Dosage: 3500 INTERNATIONAL UNIT, QW
     Route: 042
     Dates: start: 201207
  15. IDELVION [Suspect]
     Active Substance: COAGULATION FACTOR IX RECOMBINANT HUMAN
     Dosage: 5000 INTERNATIONAL UNIT
     Route: 042
     Dates: start: 20230315
  16. IDELVION [Suspect]
     Active Substance: COAGULATION FACTOR IX RECOMBINANT HUMAN
     Dosage: 5000 INTERNATIONAL UNIT
     Route: 042
     Dates: start: 20230315
  17. IDELVION [Suspect]
     Active Substance: COAGULATION FACTOR IX RECOMBINANT HUMAN
     Dosage: 5000 INTERNATIONAL UNIT, PRN
     Route: 042
     Dates: start: 201207
  18. IDELVION [Suspect]
     Active Substance: COAGULATION FACTOR IX RECOMBINANT HUMAN
     Dosage: 5000 INTERNATIONAL UNIT, PRN
     Route: 042
     Dates: start: 201207
  19. IDELVION [Suspect]
     Active Substance: COAGULATION FACTOR IX RECOMBINANT HUMAN
     Dosage: 5000 INTERNATIONAL UNIT, QW
     Route: 042
     Dates: start: 201207
  20. IDELVION [Suspect]
     Active Substance: COAGULATION FACTOR IX RECOMBINANT HUMAN
     Dosage: 5000 INTERNATIONAL UNIT, QW
     Route: 042
     Dates: start: 201207
  21. IDELVION [Suspect]
     Active Substance: COAGULATION FACTOR IX RECOMBINANT HUMAN
     Dosage: 1 DOSAGE FORM, PRN
     Route: 065
     Dates: start: 202310
  22. IDELVION [Suspect]
     Active Substance: COAGULATION FACTOR IX RECOMBINANT HUMAN
     Dosage: 1 DOSAGE FORM, PRN
     Route: 065
     Dates: start: 202310
  23. IDELVION [Suspect]
     Active Substance: COAGULATION FACTOR IX RECOMBINANT HUMAN
     Dosage: 1 DOSAGE FORM (PROPHYLACTIC DOSE)
     Route: 065
     Dates: start: 202310
  24. IDELVION [Suspect]
     Active Substance: COAGULATION FACTOR IX RECOMBINANT HUMAN
     Dosage: 1 DOSAGE FORM (PROPHYLACTIC DOSE)
     Route: 065
     Dates: start: 202310

REACTIONS (4)
  - Haemorrhage [Recovered/Resolved]
  - Haemarthrosis [Unknown]
  - Haemarthrosis [Unknown]
  - Haemarthrosis [Recovered/Resolved]

NARRATIVE: CASE EVENT DATE: 20230314
